FAERS Safety Report 16962677 (Version 4)
Quarter: 2019Q4

REPORT INFORMATION
  Report Type: Report from Study
  Country: US (occurrence: US)
  Receive Date: 20191025
  Receipt Date: 20191211
  Transmission Date: 20200122
  Serious: Yes (Death, Hospitalization, Other)
  Sender: FDA-Public Use
  Company Number: US-AMGEN INC.-USASP2019176142

PATIENT
  Age: 66 Year
  Sex: Female

DRUGS (18)
  1. ENOXAPARIN [Concomitant]
     Active Substance: ENOXAPARIN
     Dosage: UNK UNK, QD (30MG/0.3ML)
     Route: 058
     Dates: start: 20191013
  2. ELETRIPTAN. [Concomitant]
     Active Substance: ELETRIPTAN
     Dosage: 40 MILLIGRAM, QD
     Route: 048
  3. PROVENTIL [Concomitant]
     Active Substance: ALBUTEROL
     Dosage: UNK
  4. ATORVASTATIN [Concomitant]
     Active Substance: ATORVASTATIN
     Dosage: 10 MILLIGRAM, QD
     Route: 048
     Dates: start: 20190102
  5. VANCOMYCIN [Concomitant]
     Active Substance: VANCOMYCIN
     Dosage: 15 MILLIGRAM/KILOGRAM
     Route: 042
     Dates: start: 20191012
  6. HYDROCORTISONE SODIUM SUCCINATE [Concomitant]
     Active Substance: HYDROCORTISONE SODIUM SUCCINATE
     Dosage: UNK UNK, Q8H (100MG/2ML)
     Route: 042
     Dates: start: 20191013
  7. AIMOVIG [Suspect]
     Active Substance: ERENUMAB-AOOE
     Dosage: 140 MILLIGRAM
     Route: 065
     Dates: start: 201908, end: 201910
  8. ARAVA [Concomitant]
     Active Substance: LEFLUNOMIDE
     Dosage: UNK
  9. CEFTRIAXONE. [Concomitant]
     Active Substance: CEFTRIAXONE
     Dosage: UNK (IN 100 ML NS IVPB 2 GM)
     Route: 042
     Dates: start: 20191012
  10. ACETAMINOPHEN. [Concomitant]
     Active Substance: ACETAMINOPHEN
     Dosage: 650 MILLIGRAM, Q8H
     Route: 048
  11. OXYCODONE [Concomitant]
     Active Substance: OXYCODONE
     Dosage: 5 MILLIGRAM
     Route: 048
     Dates: start: 20191012
  12. SODIUM CHLORIDE. [Concomitant]
     Active Substance: SODIUM CHLORIDE
     Dosage: UNK (0.9% 1000 ML), 50 MILLILITER (0.9%), IV
     Route: 040
     Dates: start: 20191012
  13. CEFEPIME [Concomitant]
     Active Substance: CEFEPIME HYDROCHLORIDE
     Dosage: 2 GRAM, QD
     Route: 042
     Dates: start: 20191013
  14. AIMOVIG [Suspect]
     Active Substance: ERENUMAB-AOOE
     Indication: MIGRAINE
     Dosage: UNK
     Route: 065
     Dates: start: 201809, end: 2019
  15. FENTANYL CITRATE. [Concomitant]
     Active Substance: FENTANYL CITRATE
     Dosage: 25 MICROGRAM
     Route: 042
     Dates: start: 20191012
  16. NOREPINEPHRINE BITARTRATE. [Concomitant]
     Active Substance: NOREPINEPHRINE BITARTRATE
     Dosage: 1 MILLIGRAM PER MILLILITRE
     Route: 042
     Dates: start: 20191012
  17. DOXYCYCLINE HYCLATE. [Concomitant]
     Active Substance: DOXYCYCLINE HYCLATE
     Dosage: 100 MILLILITER, Q12H
     Route: 042
     Dates: start: 20191013
  18. ALBUTEROL SULFATE. [Concomitant]
     Active Substance: ALBUTEROL SULFATE
     Dosage: 90 MICROGRAM, Q4H

REACTIONS (12)
  - Diarrhoea [Unknown]
  - Cardiogenic shock [Fatal]
  - Pneumonia [Fatal]
  - Troponin T increased [Unknown]
  - Asthma [Unknown]
  - Acute kidney injury [Fatal]
  - Vomiting [Unknown]
  - Cardiac arrest [Fatal]
  - Sepsis [Unknown]
  - Neutropenia [Fatal]
  - Metabolic acidosis [Fatal]
  - Septic shock [Unknown]

NARRATIVE: CASE EVENT DATE: 2019
